FAERS Safety Report 14509745 (Version 1)
Quarter: 2018Q1

REPORT INFORMATION
  Report Type: Spontaneous
  Country: US (occurrence: US)
  Receive Date: 20180207
  Receipt Date: 20180207
  Transmission Date: 20180509
  Serious: Yes (Hospitalization)
  Sender: FDA-Public Use
  Company Number: None

PATIENT
  Age: 74 Year
  Sex: Female
  Weight: 96.16 kg

DRUGS (1)
  1. BUMETANIDE. [Suspect]
     Active Substance: BUMETANIDE
     Indication: PULMONARY HYPERTENSION
     Route: 048
     Dates: start: 20161020, end: 20170705

REACTIONS (4)
  - Renal impairment [None]
  - Orthostatic hypotension [None]
  - Dizziness [None]
  - Renal tubular necrosis [None]

NARRATIVE: CASE EVENT DATE: 20170522
